FAERS Safety Report 4797395-6 (Version None)
Quarter: 2005Q4

REPORT INFORMATION
  Report Type: 
  Country: None (occurrence: None)
  Receive Date: 20051013
  Receipt Date: 20051004
  Transmission Date: 20060501
  Serious: Yes (Death, Hospitalization)
  Sender: FDA-Public Use
  Company Number: US-JNJFOC-20050902480

PATIENT
  Age: 37 Year
  Sex: Female

DRUGS (2)
  1. DIPHENHYDRAMINE [Suspect]
     Route: 048
  2. SERTRALINE [Suspect]
     Route: 048

REACTIONS (8)
  - ARRHYTHMIA [None]
  - BRAIN OEDEMA [None]
  - COMPLETED SUICIDE [None]
  - CONDUCTION DISORDER [None]
  - CONVULSION [None]
  - INTENTIONAL DRUG MISUSE [None]
  - MULTIPLE DRUG OVERDOSE [None]
  - STATUS EPILEPTICUS [None]
